FAERS Safety Report 25573538 (Version 2)
Quarter: 2025Q3

REPORT INFORMATION
  Report Type: Report from Study
  Country: US (occurrence: US)
  Receive Date: 20250717
  Receipt Date: 20250723
  Transmission Date: 20251020
  Serious: Yes (Other)
  Sender: ABBVIE
  Company Number: US-ABBVIE-6349222

PATIENT
  Age: 56 Year
  Sex: Female
  Weight: 47.627 kg

DRUGS (1)
  1. HUMIRA [Suspect]
     Active Substance: ADALIMUMAB
     Indication: Psoriatic arthropathy
     Dosage: PEN
     Route: 058
     Dates: start: 20160519

REACTIONS (9)
  - Spinal operation [Recovered/Resolved]
  - Nasopharyngitis [Recovered/Resolved]
  - Urticaria [Not Recovered/Not Resolved]
  - Spinal operation [Unknown]
  - Hypersensitivity [Unknown]
  - Neutrophil count decreased [Not Recovered/Not Resolved]
  - Full blood count abnormal [Unknown]
  - Back pain [Not Recovered/Not Resolved]
  - Hepatic enzyme increased [Not Recovered/Not Resolved]

NARRATIVE: CASE EVENT DATE: 20160701
